FAERS Safety Report 16876930 (Version 1)
Quarter: 2019Q4

REPORT INFORMATION
  Report Type: Spontaneous
  Country: US (occurrence: US)
  Receive Date: 20191002
  Receipt Date: 20191002
  Transmission Date: 20200122
  Serious: No
  Sender: FDA-Public Use
  Company Number: None

PATIENT
  Age: 49 Year
  Sex: Male
  Weight: 116.55 kg

DRUGS (4)
  1. ACETAMINOPHEN 1G [Concomitant]
     Dates: start: 20180605, end: 20180605
  2. CEFAZOLIN 2G [Concomitant]
     Dates: start: 20180605, end: 20180605
  3. PROMETHAZINE 6.25MG [Concomitant]
     Dates: start: 20180605, end: 20180607
  4. LIDOCAINE. [Suspect]
     Active Substance: LIDOCAINE
     Dates: start: 20180605, end: 20180605

REACTIONS (4)
  - Nausea [None]
  - Diplopia [None]
  - Vomiting [None]
  - Therapy cessation [None]

NARRATIVE: CASE EVENT DATE: 20180605
